FAERS Safety Report 19717856 (Version 2)
Quarter: 2021Q3

REPORT INFORMATION
  Report Type: Report from Study
  Country: DE (occurrence: DE)
  Receive Date: 20210818
  Receipt Date: 20210909
  Transmission Date: 20211014
  Serious: Yes (Hospitalization)
  Sender: FDA-Public Use
  Company Number: DE-MYLANLABS-2021M1051198

PATIENT
  Age: 55 Year
  Sex: Male

DRUGS (8)
  1. CALCIUM LEVOFOLINATE [Suspect]
     Active Substance: LEVOLEUCOVORIN CALCIUM
     Indication: COLORECTAL CANCER METASTATIC
     Dosage: 740 MG, QCY
     Route: 042
     Dates: start: 20201123, end: 20201123
  2. CALCIUM LEVOFOLINATE [Suspect]
     Active Substance: LEVOLEUCOVORIN CALCIUM
     Dosage: 740 MG
     Route: 042
     Dates: start: 20200914, end: 20200914
  3. OXALIPLATIN. [Suspect]
     Active Substance: OXALIPLATIN
     Dosage: 180 MILLIGRAM, CYCLE
     Route: 042
     Dates: start: 20200914, end: 20200914
  4. 5?FU                               /00098801/ [Suspect]
     Active Substance: FLUOROURACIL
     Dosage: 5100 MG, QCY
     Route: 042
     Dates: start: 20200914, end: 20200914
  5. AFLIBERCEPT [Suspect]
     Active Substance: AFLIBERCEPT
     Indication: COLORECTAL CANCER METASTATIC
     Dosage: 310 MG
     Route: 042
     Dates: start: 20200914, end: 20200914
  6. AFLIBERCEPT [Suspect]
     Active Substance: AFLIBERCEPT
     Dosage: 310 MG, QCY
     Route: 042
     Dates: start: 20201109, end: 20201109
  7. 5?FU                               /00098801/ [Suspect]
     Active Substance: FLUOROURACIL
     Indication: COLORECTAL CANCER METASTATIC
     Dosage: 5100 MG, QCY
     Route: 042
     Dates: start: 20201123, end: 20201123
  8. OXALIPLATIN. [Suspect]
     Active Substance: OXALIPLATIN
     Indication: COLORECTAL CANCER METASTATIC
     Dosage: 180 MILLIGRAM, CYCLE
     Route: 042
     Dates: start: 20201123, end: 20201123

REACTIONS (2)
  - Ileus [Recovered/Resolved]
  - Anastomotic leak [Not Recovered/Not Resolved]

NARRATIVE: CASE EVENT DATE: 20210210
